FAERS Safety Report 21783283 (Version 1)
Quarter: 2022Q4

REPORT INFORMATION
  Report Type: Spontaneous
  Country: US (occurrence: None)
  Receive Date: 20221222
  Receipt Date: 20221222
  Transmission Date: 20230112
  Serious: Yes (Life-Threatening)
  Sender: FDA-Public Use
  Company Number: None

PATIENT
  Age: 33 Year
  Sex: Female
  Weight: 72.57 kg

DRUGS (4)
  1. ARMODAFINIL [Suspect]
     Active Substance: ARMODAFINIL
  2. PROVIGIL [Suspect]
     Active Substance: MODAFINIL
  3. ADDERALL [Suspect]
     Active Substance: AMPHETAMINE ASPARTATE\AMPHETAMINE SULFATE\DEXTROAMPHETAMINE SACCHARATE\DEXTROAMPHETAMINE SULFATE
  4. RITALIN [Suspect]
     Active Substance: METHYLPHENIDATE HYDROCHLORIDE

REACTIONS (10)
  - Somnolence [None]
  - Drug ineffective [None]
  - Product substitution issue [None]
  - Headache [None]
  - Loss of personal independence in daily activities [None]
  - Insurance issue [None]
  - Impaired driving ability [None]
  - Fatigue [None]
  - Impaired work ability [None]
  - Product supply issue [None]
